FAERS Safety Report 13427203 (Version 1)
Quarter: 2017Q2

REPORT INFORMATION
  Report Type: Spontaneous
  Country: US (occurrence: US)
  Receive Date: 20170411
  Receipt Date: 20170411
  Transmission Date: 20170830
  Serious: No
  Sender: FDA-Public Use
  Company Number: None

PATIENT
  Age: 46 Year
  Sex: Female

DRUGS (2)
  1. BUPRENORPHINE/NALOXONE 8MG/2MG [Suspect]
     Active Substance: BUPRENORPHINE\NALOXONE
     Indication: INTENTIONAL PRODUCT MISUSE
     Dosage: 8.2 TID SUBLINGUAL
     Route: 060
  2. BUPRENORPHINE/NALOXONE 8MG/2MG [Suspect]
     Active Substance: BUPRENORPHINE\NALOXONE
     Indication: PAIN
     Dosage: 8.2 TID SUBLINGUAL
     Route: 060

REACTIONS (5)
  - Nausea [None]
  - Malnutrition [None]
  - Product dosage form issue [None]
  - Vomiting [None]
  - Adverse reaction [None]
